FAERS Safety Report 9607691 (Version 1)
Quarter: 2013Q4

REPORT INFORMATION
  Report Type: Spontaneous
  Country: BR (occurrence: BR)
  Receive Date: 20131009
  Receipt Date: 20131009
  Transmission Date: 20140711
  Serious: Yes (Other)
  Sender: FDA-Public Use
  Company Number: BR-JNJFOC-20131000902

PATIENT
  Sex: Male
  Weight: 46 kg

DRUGS (4)
  1. REMICADE [Suspect]
     Indication: CROHN^S DISEASE
     Route: 042
     Dates: start: 20130711
  2. REMICADE [Suspect]
     Indication: CROHN^S DISEASE
     Dosage: 5 AMPOULES EVERY 6 WEEKS WAS PRESCRIBED BY PHYSICIAN BUT THE GOVERNMENT PROVIDED ONLY 3 AMPOULES
     Route: 042
  3. REMICADE [Suspect]
     Indication: CROHN^S DISEASE
     Dosage: 3 AMPOULES EVERY 6 WEEKS
     Route: 042
     Dates: start: 201108
  4. AZATHIOPRINE [Suspect]
     Indication: PRODUCT USED FOR UNKNOWN INDICATION
     Route: 065
     Dates: end: 201308

REACTIONS (4)
  - Pancreatitis [Recovering/Resolving]
  - Crohn^s disease [Unknown]
  - Therapeutic response decreased [Unknown]
  - Weight decreased [Unknown]
